FAERS Safety Report 4536805-6 (Version None)
Quarter: 2004Q4

REPORT INFORMATION
  Report Type: 
  Country: None (occurrence: None)
  Receive Date: 20041220
  Receipt Date: 20041209
  Transmission Date: 20050328
  Serious: Yes (Life-Threatening)
  Sender: FDA-Public Use
  Company Number: IT-2004-036371

PATIENT
  Age: 81 Year
  Sex: Female

DRUGS (1)
  1. ULTRAVIST (IOPROMIDE) INFUSION [Suspect]
     Indication: COMPUTERISED TOMOGRAM THORAX
     Dosage: 1 DOSE , INJECTION
     Dates: start: 20041119, end: 20041119

REACTIONS (2)
  - CARDIAC ARREST [None]
  - CONTRAST MEDIA REACTION [None]
